FAERS Safety Report 16722836 (Version 1)
Quarter: 2019Q3

REPORT INFORMATION
  Report Type: Report from Study
  Country: None (occurrence: US)
  Receive Date: 20190821
  Receipt Date: 20190821
  Transmission Date: 20191005
  Serious: Yes (Hospitalization)
  Sender: FDA-Public Use
  Company Number: US-ABBVIE-19K-163-2850404-00

PATIENT
  Sex: Male

DRUGS (3)
  1. VENCLEXTA [Suspect]
     Active Substance: VENETOCLAX
     Route: 048
     Dates: start: 2019
  2. VENCLEXTA [Suspect]
     Active Substance: VENETOCLAX
     Indication: ACUTE MYELOID LEUKAEMIA
     Dosage: DOSE DECREASE
     Route: 048
     Dates: start: 2019, end: 2019
  3. VENCLEXTA [Suspect]
     Active Substance: VENETOCLAX
     Indication: ACUTE MYELOID LEUKAEMIA
     Route: 048
     Dates: start: 20190610, end: 2019

REACTIONS (15)
  - Lymphocyte count increased [Unknown]
  - Urine albumin/creatinine ratio increased [Unknown]
  - Red blood cell elliptocytes present [Unknown]
  - Blood testosterone decreased [Unknown]
  - Red blood cell count decreased [Unknown]
  - Adverse event [Unknown]
  - Monocyte count decreased [Unknown]
  - Asthenia [Unknown]
  - Pneumonia [Unknown]
  - Neutrophil count decreased [Unknown]
  - Constipation [Unknown]
  - Abdominal wall wound [Unknown]
  - Red cell distribution width increased [Unknown]
  - Protein total decreased [Unknown]
  - Blood triglycerides increased [Unknown]

NARRATIVE: CASE EVENT DATE: 2019
